FAERS Safety Report 7582419-3 (Version None)
Quarter: 2011Q2

REPORT INFORMATION
  Report Type: 
  Country: None (occurrence: None)
  Receive Date: 20110630
  Receipt Date: 20110617
  Transmission Date: 20111010
  Serious: Yes (Hospitalization, Other)
  Sender: FDA-Public Use
  Company Number: FR-ELI_LILLY_AND_COMPANY-FR201106005108

PATIENT
  Age: 18 Year
  Sex: Male

DRUGS (2)
  1. ZYPREXA [Suspect]
     Indication: PSYCHOTIC DISORDER
     Dosage: 10 MG, QD
     Route: 048
     Dates: start: 20090601
  2. ANTIEPILEPTICS [Concomitant]
     Indication: EPILEPSY
     Dosage: UNK, UNKNOWN
     Route: 048

REACTIONS (5)
  - HYPERTRIGLYCERIDAEMIA [None]
  - CEREBRAL HAEMORRHAGE [None]
  - HYPERCHOLESTEROLAEMIA [None]
  - WEIGHT INCREASED [None]
  - OFF LABEL USE [None]
